FAERS Safety Report 6938145-4 (Version None)
Quarter: 2010Q3

REPORT INFORMATION
  Report Type: 
  Country: None (occurrence: None)
  Receive Date: 20100824
  Receipt Date: 20100810
  Transmission Date: 20110219
  Serious: No
  Sender: FDA-Public Use
  Company Number: PHHY2010US52901

PATIENT
  Sex: Male

DRUGS (3)
  1. TASIGNA [Suspect]
  2. GLEEVEC [Suspect]
  3. SPRYCEL [Suspect]

REACTIONS (1)
  - DRUG INEFFECTIVE [None]
